FAERS Safety Report 18184520 (Version 1)
Quarter: 2020Q3

REPORT INFORMATION
  Report Type: Spontaneous
  Country: FR (occurrence: FR)
  Receive Date: 20200824
  Receipt Date: 20200824
  Transmission Date: 20201103
  Serious: Yes (Hospitalization)
  Sender: FDA-Public Use
  Company Number: FR-AUROBINDO-AUR-APL-2020-040374

PATIENT
  Age: 17 Year
  Sex: Male
  Weight: 63.7 kg

DRUGS (2)
  1. TERCIAN [Suspect]
     Active Substance: CYAMEMAZINE
     Indication: OBSESSIVE-COMPULSIVE DISORDER
     Dosage: 500 MILLIGRAM (TOTAL)
     Route: 048
     Dates: start: 20200715, end: 20200715
  2. PAROXETINE. [Suspect]
     Active Substance: PAROXETINE
     Indication: PRODUCT USED FOR UNKNOWN INDICATION
     Dosage: 12 DOSAGE FORM (1 TOTAL)
     Route: 048
     Dates: start: 20200715, end: 20200715

REACTIONS (2)
  - Extrapyramidal disorder [Recovered/Resolved]
  - Toxicity to various agents [Recovered/Resolved]

NARRATIVE: CASE EVENT DATE: 20200715
